FAERS Safety Report 17609204 (Version 1)
Quarter: 2020Q2

REPORT INFORMATION
  Report Type: Spontaneous
  Country: SE (occurrence: SE)
  Receive Date: 20200401
  Receipt Date: 20200401
  Transmission Date: 20200713
  Serious: Yes (Disabling)
  Sender: FDA-Public Use
  Company Number: SE-TEVA-2020-SE-1214106

PATIENT
  Age: 68 Year
  Sex: Female
  Weight: 50 kg

DRUGS (3)
  1. PROPAVAN [Suspect]
     Active Substance: PROPIOMAZINE
     Indication: SLEEP DISORDER
  2. OXASCAND [Suspect]
     Active Substance: OXAZEPAM
     Route: 065
     Dates: end: 20200228
  3. PROPAVAN [Suspect]
     Active Substance: PROPIOMAZINE
     Indication: ANXIETY
     Route: 065
     Dates: end: 20200228

REACTIONS (7)
  - Memory impairment [Recovered/Resolved with Sequelae]
  - Musculoskeletal stiffness [Recovered/Resolved with Sequelae]
  - Confusional state [Recovered/Resolved with Sequelae]
  - Gait disturbance [Recovered/Resolved with Sequelae]
  - Posture abnormal [Recovered/Resolved with Sequelae]
  - Tongue paralysis [Recovered/Resolved with Sequelae]
  - Malocclusion [Recovered/Resolved with Sequelae]

NARRATIVE: CASE EVENT DATE: 202002
